FAERS Safety Report 5812025-X (Version None)
Quarter: 2008Q3

REPORT INFORMATION
  Report Type: 
  Country: None (occurrence: None)
  Receive Date: 20080716
  Receipt Date: 20080707
  Transmission Date: 20090109
  Serious: Yes (Hospitalization)
  Sender: FDA-Public Use
  Company Number: PHHY2008FR13516

PATIENT
  Sex: Female

DRUGS (11)
  1. VOLTAREN [Suspect]
     Indication: BACK PAIN
     Dosage: UNK
     Dates: start: 20071211
  2. VOLTAREN [Suspect]
     Indication: BACK PAIN
     Dosage: UNK
     Dates: start: 20080116
  3. FLECTOR RETARD [Suspect]
     Indication: BACK PAIN
     Dosage: UNK
     Dates: start: 20080410
  4. PERCULTALGINE [Suspect]
     Indication: BACK PAIN
     Dosage: UNK
     Dates: start: 20080505
  5. BI-PROFENID [Suspect]
     Indication: BACK PAIN
     Dosage: 150 MG, BID
     Dates: start: 20080509, end: 20080514
  6. MYOLASTAN [Suspect]
     Dosage: 1 TAB/DAY
     Dates: start: 20080509, end: 20080514
  7. URSOLVAN [Concomitant]
     Dosage: UNK
     Dates: start: 19970101
  8. IRBESARTAN [Concomitant]
     Dosage: 300 MG/DAY
     Dates: start: 20030101
  9. ACETAMINOPHEN [Concomitant]
  10. HYDROCORTANCYL [Concomitant]
     Indication: BACK PAIN
     Dosage: UNK
     Dates: start: 20080320
  11. UNIPOMP [Concomitant]
     Dosage: 20 MG/DAY
     Dates: start: 20080509, end: 20080514

REACTIONS (6)
  - ASTHENIA [None]
  - DERMATITIS CONTACT [None]
  - HEADACHE [None]
  - PYREXIA [None]
  - RASH MACULO-PAPULAR [None]
  - TOXIC SKIN ERUPTION [None]
